FAERS Safety Report 5076108-7 (Version None)
Quarter: 2006Q3

REPORT INFORMATION
  Report Type: 
  Country: None (occurrence: None)
  Receive Date: 20060804
  Receipt Date: 20060721
  Transmission Date: 20061208
  Serious: Yes (Life-Threatening)
  Sender: FDA-Public Use
  Company Number: 2006-145338-NL

PATIENT
  Age: 74 Year
  Sex: Male

DRUGS (10)
  1. ROCURONIUM BROMIDE [Suspect]
     Indication: MUSCLE RELAXANT THERAPY
     Dosage: 40 MG ONCE/60  MG ONCE/60 MG ONCE, INTRAVENOUS NOS
     Route: 042
     Dates: start: 20050927, end: 20050927
  2. SUFENTANIL CITRATE [Concomitant]
  3. ISOFLURANE [Concomitant]
  4. OXYGEN [Concomitant]
  5. NITROUS OXIDE W/ OXYGEN [Concomitant]
  6. CEFAZOLIN SODIUM [Concomitant]
  7. LORAZEPAM [Concomitant]
  8. ACETAMINOPHEN [Concomitant]
  9. MIDAZOLAM HYDROCHLORIDE [Concomitant]
  10. BETAHISTINE HYDROCHLORIDE [Concomitant]

REACTIONS (1)
  - CIRCULATORY COLLAPSE [None]
